FAERS Safety Report 24295664 (Version 1)
Quarter: 2024Q3

REPORT INFORMATION
  Report Type: Spontaneous
  Country: JP (occurrence: JP)
  Receive Date: 20240908
  Receipt Date: 20240908
  Transmission Date: 20241016
  Serious: Yes (Death)
  Sender: GALDERMA
  Company Number: JP-GALDERMA-JP2024002923

PATIENT

DRUGS (3)
  1. NEMOLIZUMAB [Suspect]
     Active Substance: NEMOLIZUMAB
     Indication: Product used for unknown indication
     Dosage: 60 MILLIGRAM, PER 4 WEEKS
     Route: 058
  2. NEMOLIZUMAB [Suspect]
     Active Substance: NEMOLIZUMAB
     Dosage: 60 MILLIGRAM, PER 4 WEEKS
     Route: 058
  3. NEMOLIZUMAB [Suspect]
     Active Substance: NEMOLIZUMAB
     Dosage: 60 MILLIGRAM, PER 4 WEEKS
     Route: 058

REACTIONS (1)
  - Illness [Fatal]
